FAERS Safety Report 6685716-9 (Version None)
Quarter: 2010Q2

REPORT INFORMATION
  Report Type: 
  Country: None (occurrence: None)
  Receive Date: 20100419
  Receipt Date: 20100412
  Transmission Date: 20101027
  Serious: No
  Sender: FDA-Public Use
  Company Number: 2009BI015386

PATIENT
  Age: 52 Year
  Sex: Female

DRUGS (7)
  1. TYSABRI [Suspect]
     Indication: MULTIPLE SCLEROSIS
     Route: 042
     Dates: start: 20080926, end: 20090417
  2. TYSABRI [Suspect]
     Route: 042
     Dates: start: 20091026, end: 20091026
  3. BENADRYL [Concomitant]
     Indication: PREMEDICATION
     Dates: start: 20090201
  4. CRESTOR [Concomitant]
     Indication: DYSLIPIDAEMIA
  5. DETROL [Concomitant]
     Indication: DRUG USE FOR UNKNOWN INDICATION
  6. COZAAR [Concomitant]
     Indication: DRUG USE FOR UNKNOWN INDICATION
  7. CYMBALTA [Concomitant]
     Indication: DRUG USE FOR UNKNOWN INDICATION

REACTIONS (4)
  - ASTHENIA [None]
  - FATIGUE [None]
  - TRANSAMINASES INCREASED [None]
  - VOMITING [None]
